FAERS Safety Report 14665541 (Version 1)
Quarter: 2018Q1

REPORT INFORMATION
  Report Type: Report from Study
  Country: IT (occurrence: IT)
  Receive Date: 20180321
  Receipt Date: 20180321
  Transmission Date: 20180509
  Serious: Yes (Hospitalization)
  Sender: FDA-Public Use
  Company Number: IT-TEVA-2018-IT-869313

PATIENT
  Age: 92 Year
  Sex: Female

DRUGS (8)
  1. ALLOPURINOLO TEVA [Concomitant]
  2. LANOXIN 0,0625 MG COMPRESSE [Concomitant]
  3. CELECOXIB. [Concomitant]
     Active Substance: CELECOXIB
  4. TAREG [Concomitant]
     Active Substance: VALSARTAN
  5. TORASEMIDE [Concomitant]
     Active Substance: TORSEMIDE
  6. HALDOL 2 MG/ML GOCCE ORALI, SOLUZIONE [Concomitant]
  7. LORAZEPAM. [Suspect]
     Active Substance: LORAZEPAM
     Indication: AGITATION
     Route: 048
     Dates: start: 20171115, end: 20171118
  8. CARDIRENE 75 MG [Concomitant]
     Active Substance: ASPIRIN DL-LYSINE

REACTIONS (5)
  - Coma scale abnormal [Recovered/Resolved]
  - Sopor [Recovered/Resolved]
  - Overdose [Recovered/Resolved]
  - Depressed level of consciousness [Recovered/Resolved]
  - Product use in unapproved indication [Recovered/Resolved]

NARRATIVE: CASE EVENT DATE: 20171115
